FAERS Safety Report 7019533-7 (Version None)
Quarter: 2010Q3

REPORT INFORMATION
  Report Type: 
  Country: None (occurrence: None)
  Receive Date: 20100923
  Receipt Date: 20100908
  Transmission Date: 20110219
  Serious: Yes (Hospitalization)
  Sender: FDA-Public Use
  Company Number: 2010US0029

PATIENT
  Age: 10 Year
  Sex: Female

DRUGS (2)
  1. ORFADIN [Suspect]
     Indication: TYROSINAEMIA
     Dosage: 20 MG, 2 IN 1 D
     Dates: start: 20000101
  2. MIRALAX [Concomitant]

REACTIONS (6)
  - ABDOMINAL PAIN [None]
  - FAECALOMA [None]
  - INTESTINAL OBSTRUCTION [None]
  - NAUSEA [None]
  - URINE OUTPUT DECREASED [None]
  - VOMITING [None]
